FAERS Safety Report 10136657 (Version 1)
Quarter: 2014Q2

REPORT INFORMATION
  Report Type: Spontaneous
  Country: CN (occurrence: CN)
  Receive Date: 20140429
  Receipt Date: 20140429
  Transmission Date: 20141212
  Serious: Yes (Life-Threatening)
  Sender: FDA-Public Use
  Company Number: CN-BAYER-2014-057429

PATIENT
  Age: 85 Year
  Sex: Male
  Weight: 55 kg

DRUGS (1)
  1. AVELOX [Suspect]
     Indication: LUNG INFECTION
     Dosage: 0.4 G, QD IVGTT
     Route: 041
     Dates: start: 20131004, end: 20131009

REACTIONS (1)
  - Hypotension [Recovering/Resolving]
